FAERS Safety Report 10273772 (Version 2)
Quarter: 2014Q3

REPORT INFORMATION
  Report Type: Spontaneous
  Country: US (occurrence: US)
  Receive Date: 20140702
  Receipt Date: 20140702
  Transmission Date: 20150326
  Serious: Yes (Hospitalization)
  Sender: FDA-Public Use
  Company Number: US-009507513-2011SP002506

PATIENT
  Sex: Female
  Weight: 89.81 kg

DRUGS (1)
  1. NUVARING [Suspect]
     Active Substance: ETHINYL ESTRADIOL\ETONOGESTREL
     Indication: CONTRACEPTION
     Route: 067
     Dates: start: 20060706, end: 200610

REACTIONS (7)
  - Nausea [Unknown]
  - Mental disorder [Unknown]
  - Hypercoagulation [Unknown]
  - Dizziness [Unknown]
  - Deep vein thrombosis [Recovered/Resolved]
  - Pain [Unknown]
  - Emotional disorder [Unknown]

NARRATIVE: CASE EVENT DATE: 200610
